FAERS Safety Report 9336014 (Version 1)
Quarter: 2013Q2

REPORT INFORMATION
  Report Type: Spontaneous
  Country: US (occurrence: US)
  Receive Date: 20130607
  Receipt Date: 20130607
  Transmission Date: 20140414
  Serious: No
  Sender: FDA-Public Use
  Company Number: US-009507513-1306USA002714

PATIENT
  Age: 35 Year
  Sex: Female

DRUGS (1)
  1. BETAMETHASONE DIPROPIONATE [Suspect]
     Indication: PREMATURE DELIVERY
     Dosage: 2 DF, UNK
     Route: 030

REACTIONS (1)
  - Exposure during pregnancy [Recovered/Resolved]
